FAERS Safety Report 10164823 (Version 1)
Quarter: 2014Q2

REPORT INFORMATION
  Report Type: Spontaneous
  Country: US (occurrence: US)
  Receive Date: 20140510
  Receipt Date: 20140510
  Transmission Date: 20141212
  Serious: No
  Sender: FDA-Public Use
  Company Number: US-BRISTOL-MYERS SQUIBB COMPANY-20197018

PATIENT
  Age: 67 Year
  Sex: Male
  Weight: 83.9 kg

DRUGS (7)
  1. BYDUREON [Suspect]
     Indication: TYPE 2 DIABETES MELLITUS
     Route: 058
  2. METFORMIN [Concomitant]
  3. TESTOSTERONE [Concomitant]
     Dosage: 1DF:.9CC
  4. ASPIRIN [Concomitant]
  5. COZAAR [Concomitant]
  6. CRESTOR [Concomitant]
  7. VITAMINS [Concomitant]

REACTIONS (5)
  - Nausea [Unknown]
  - Insomnia [Unknown]
  - Dyspepsia [Unknown]
  - Underdose [Unknown]
  - Product quality issue [Unknown]
